FAERS Safety Report 8551821 (Version 2)
Quarter: 2013Q4

REPORT INFORMATION
  Report Type: Spontaneous
  Country: US (occurrence: US)
  Receive Date: 20120508
  Receipt Date: 20131024
  Transmission Date: 20140711
  Serious: Yes (Life-Threatening, Hospitalization)
  Sender: FDA-Public Use
  Company Number: US-BAYER-2012-043303

PATIENT
  Age: 18 Year
  Sex: Female
  Weight: 72.57 kg

DRUGS (5)
  1. YAZ [Suspect]
     Indication: MENOMETRORRHAGIA
  2. YAZ [Suspect]
     Indication: MENSTRUAL CYCLE MANAGEMENT
  3. YAZ [Suspect]
     Indication: VAGINAL HAEMORRHAGE
  4. YASMIN [Suspect]
  5. OCELLA [Suspect]

REACTIONS (7)
  - Pulmonary embolism [None]
  - Injury [None]
  - Pain [None]
  - General physical health deterioration [None]
  - Anxiety [None]
  - Anhedonia [None]
  - Emotional distress [None]
